FAERS Safety Report 15336621 (Version 1)
Quarter: 2018Q3

REPORT INFORMATION
  Report Type: Report from Study
  Country: None (occurrence: DE)
  Receive Date: 20180830
  Receipt Date: 20180830
  Transmission Date: 20181010
  Serious: Yes (Death)
  Sender: FDA-Public Use
  Company Number: DE-ABBVIE-18S-062-2468495-00

PATIENT
  Age: 84 Year
  Sex: Male

DRUGS (1)
  1. DUODOPA [Suspect]
     Active Substance: CARBIDOPA\LEVODOPA
     Indication: PARKINSON^S DISEASE
     Dosage: MD 8.0 ML; CRD 2.3 ML/HR; ED 0.5 ML
     Route: 050
     Dates: start: 20180711, end: 20180824

REACTIONS (1)
  - Death [Fatal]

NARRATIVE: CASE EVENT DATE: 20180824
